FAERS Safety Report 12991798 (Version 3)
Quarter: 2017Q2

REPORT INFORMATION
  Report Type: Spontaneous
  Country: FR (occurrence: FR)
  Receive Date: 20161201
  Receipt Date: 20170616
  Transmission Date: 20170830
  Serious: Yes (Hospitalization)
  Sender: FDA-Public Use
  Company Number: FR-OTSUKA-2016_027866

PATIENT
  Age: 23 Year
  Sex: Male

DRUGS (3)
  1. ABILIFY MAINTENA [Suspect]
     Active Substance: ARIPIPRAZOLE
     Indication: ALCOHOL ABUSE
     Dosage: 400 MG, EVERY FOUR WEEKS
     Route: 030
     Dates: start: 201512
  2. ALCOHOL. [Interacting]
     Active Substance: ALCOHOL
     Indication: PRODUCT USED FOR UNKNOWN INDICATION
     Dosage: UNK
     Route: 065
  3. ABILIFY MAINTENA [Interacting]
     Active Substance: ARIPIPRAZOLE
     Indication: SUBSTANCE USE DISORDER

REACTIONS (9)
  - Abnormal behaviour [Not Recovered/Not Resolved]
  - Blood alcohol increased [Unknown]
  - Drug interaction [Unknown]
  - Off label use [Unknown]
  - Head injury [Unknown]
  - Vomiting [Unknown]
  - Concussion [Unknown]
  - Nausea [Unknown]
  - Road traffic accident [Recovered/Resolved]

NARRATIVE: CASE EVENT DATE: 201512
